FAERS Safety Report 6142207-1 (Version None)
Quarter: 2009Q2

REPORT INFORMATION
  Report Type: 
  Country: None (occurrence: None)
  Receive Date: 20090403
  Receipt Date: 20071008
  Transmission Date: 20091009
  Serious: Yes (Hospitalization, Other)
  Sender: FDA-Public Use
  Company Number: US-ASTRAZENECA-2007UW24386

PATIENT
  Age: 15023 Day
  Sex: Male
  Weight: 106.1 kg

DRUGS (22)
  1. SEROQUEL [Suspect]
     Indication: SLEEP DISORDER
     Route: 048
     Dates: start: 20020101, end: 20030101
  2. SEROQUEL [Suspect]
     Dosage: 100-200 MG
     Route: 048
     Dates: start: 20020811, end: 20040401
  3. LOTENSIN [Concomitant]
  4. PRILOSEC [Concomitant]
  5. LEXAPRO [Concomitant]
  6. AMBIEN [Concomitant]
  7. METHADONE [Concomitant]
  8. ZANAFLEX [Concomitant]
  9. VALIUM [Concomitant]
  10. METHOCARBAMOL [Concomitant]
  11. DOCUSATE SODIUM [Concomitant]
  12. PLAQUENIL [Concomitant]
  13. GLUCOTROL [Concomitant]
  14. CELEXA [Concomitant]
  15. IMIPRAMINE [Concomitant]
  16. THORAZINE [Concomitant]
  17. ZYPREXA [Concomitant]
  18. VICODIN [Concomitant]
  19. INSULIN-HM R [Concomitant]
  20. ASPIRIN [Concomitant]
  21. ATENOLOL [Concomitant]
  22. ANSAID [Concomitant]

REACTIONS (26)
  - ANAL FISSURE [None]
  - ANIMAL BITE [None]
  - ANION GAP DECREASED [None]
  - ANXIETY [None]
  - ARTHRALGIA [None]
  - BACK PAIN [None]
  - BURNING SENSATION [None]
  - CHEST PAIN [None]
  - DEAFNESS NEUROSENSORY [None]
  - DEPRESSION [None]
  - DIABETES MELLITUS [None]
  - FOLLICULITIS [None]
  - GAIT DISTURBANCE [None]
  - HYPOAESTHESIA [None]
  - INFECTED BITES [None]
  - INFECTION [None]
  - INTERVERTEBRAL DISC PROTRUSION [None]
  - LUMBAR RADICULOPATHY [None]
  - MUSCULAR WEAKNESS [None]
  - OSTEOARTHRITIS [None]
  - OSTEONECROSIS [None]
  - PAIN [None]
  - PAIN IN EXTREMITY [None]
  - PARAESTHESIA [None]
  - SCOLIOSIS [None]
  - WEIGHT INCREASED [None]
